FAERS Safety Report 19436143 (Version 4)
Quarter: 2021Q4

REPORT INFORMATION
  Report Type: Report from Study
  Country: CA (occurrence: CA)
  Receive Date: 20210618
  Receipt Date: 20211006
  Transmission Date: 20220303
  Serious: Yes (Hospitalization, Other)
  Sender: FDA-Public Use
  Company Number: CA-JNJFOC-20210424137

PATIENT
  Age: 32 Year
  Sex: Female
  Weight: 59.8 kg

DRUGS (9)
  1. STELARA [Suspect]
     Active Substance: USTEKINUMAB
     Indication: Crohn^s disease
     Route: 058
     Dates: start: 20201221
  2. STELARA [Suspect]
     Active Substance: USTEKINUMAB
  3. CITALOPRAM [Concomitant]
     Active Substance: CITALOPRAM HYDROBROMIDE
     Indication: Product used for unknown indication
     Route: 048
  4. MARVELON [Concomitant]
     Active Substance: DESOGESTREL\ETHINYL ESTRADIOL
     Indication: Product used for unknown indication
     Route: 048
  5. ERGOCALCIFEROL [Concomitant]
     Active Substance: ERGOCALCIFEROL
     Indication: Product used for unknown indication
     Dosage: 10000 UNITS
     Route: 048
  6. CALCIUM\CHOLECALCIFEROL [Concomitant]
     Active Substance: CALCIUM\CHOLECALCIFEROL
     Indication: Product used for unknown indication
     Route: 065
  7. ATIVAN [Concomitant]
     Active Substance: LORAZEPAM
     Indication: Product used for unknown indication
     Dosage: AS REQUIRED
     Route: 048
  8. MORPHINE [Concomitant]
     Active Substance: MORPHINE
     Indication: Product used for unknown indication
     Route: 048
  9. AMINOSALICYLIC ACID [Concomitant]
     Active Substance: AMINOSALICYLIC ACID
     Indication: Antiinflammatory therapy
     Route: 065

REACTIONS (11)
  - Pyelonephritis [Recovered/Resolved]
  - Staphylococcal infection [Not Recovered/Not Resolved]
  - Crohn^s disease [Not Recovered/Not Resolved]
  - Exposure during pregnancy [Recovered/Resolved]
  - Hypomenorrhoea [Unknown]
  - Cold sweat [Recovered/Resolved]
  - Faeces soft [Recovered/Resolved]
  - Hormone level abnormal [Unknown]
  - Acne [Recovering/Resolving]
  - Diarrhoea [Recovered/Resolved]
  - Therapeutic product effect decreased [Unknown]

NARRATIVE: CASE EVENT DATE: 20210101
